FAERS Safety Report 7490838-9 (Version None)
Quarter: 2011Q1

REPORT INFORMATION
  Report Type: 
  Country: None (occurrence: None)
  Receive Date: 20110318
  Receipt Date: 20100913
  Transmission Date: 20110831
  Serious: Yes (Other)
  Sender: FDA-Public Use
  Company Number: 10US012973

PATIENT
  Age: 7 Year
  Sex: Female
  Weight: 27.2 kg

DRUGS (7)
  1. ASMANEX TWISTHALER [Concomitant]
  2. ZYRTEC [Concomitant]
  3. NASONEX [Concomitant]
  4. SINGULAIR [Concomitant]
  5. IBUPROFEN [Suspect]
     Indication: VIRAL INFECTION
     Dosage: 200 MG, SINGLE, ORAL
     Route: 048
     Dates: start: 20100910, end: 20100910
  6. IBUPROFEN [Suspect]
     Indication: OROPHARYNGEAL PAIN
     Dosage: 200 MG, SINGLE, ORAL
     Route: 048
     Dates: start: 20100910, end: 20100910
  7. IBUPROFEN [Suspect]
     Indication: PYREXIA
     Dosage: 200 MG, SINGLE, ORAL
     Route: 048
     Dates: start: 20100910, end: 20100910

REACTIONS (1)
  - ANAPHYLACTIC SHOCK [None]
